FAERS Safety Report 12310724 (Version 4)
Quarter: 2016Q2

REPORT INFORMATION
  Report Type: Spontaneous
  Country: JP (occurrence: JP)
  Receive Date: 20160427
  Receipt Date: 20160516
  Transmission Date: 20160815
  Serious: Yes (Hospitalization)
  Sender: FDA-Public Use
  Company Number: PHJP2016JP010246

PATIENT
  Age: 47 Year
  Sex: Female

DRUGS (5)
  1. TOCOPHEROL [Concomitant]
     Active Substance: TOCOPHEROL
     Indication: SCLERODERMA
     Route: 065
  2. CICLOSPORIN [Suspect]
     Active Substance: CYCLOSPORINE
     Indication: SCLERODERMA
  3. PREDNISOLONE. [Suspect]
     Active Substance: PREDNISOLONE
     Indication: INTERSTITIAL LUNG DISEASE
     Dosage: 30 MG, QD
     Route: 065
  4. PREDNISOLONE. [Suspect]
     Active Substance: PREDNISOLONE
     Indication: SCLERODERMA
     Dosage: 25 MG, QD
     Route: 065
  5. CICLOSPORIN [Suspect]
     Active Substance: CYCLOSPORINE
     Indication: INTERSTITIAL LUNG DISEASE
     Dosage: 200 MG, QD
     Route: 065

REACTIONS (14)
  - Headache [Unknown]
  - Acute kidney injury [Unknown]
  - Restlessness [Unknown]
  - Fundoscopy abnormal [Unknown]
  - Malignant hypertension [Recovered/Resolved]
  - Retinal haemorrhage [Unknown]
  - Pulmonary congestion [Unknown]
  - Thrombocytopenia [Recovering/Resolving]
  - Scleroderma renal crisis [Unknown]
  - Product use issue [Unknown]
  - Thrombotic microangiopathy [Unknown]
  - Anaemia [Recovering/Resolving]
  - Nausea [Unknown]
  - Dyspnoea [Unknown]
